FAERS Safety Report 11601482 (Version 4)
Quarter: 2017Q4

REPORT INFORMATION
  Report Type: Spontaneous
  Country: US (occurrence: US)
  Receive Date: 20151006
  Receipt Date: 20171024
  Transmission Date: 20180320
  Serious: Yes (Other)
  Sender: FDA-Public Use
  Company Number: US-AMGEN-USASP2015027004

PATIENT
  Age: 77 Year
  Sex: Female

DRUGS (1)
  1. PROLIA [Suspect]
     Active Substance: DENOSUMAB
     Indication: OSTEOPOROSIS POSTMENOPAUSAL
     Dosage: UNK
     Route: 065
     Dates: start: 2014

REACTIONS (14)
  - Pain in extremity [Recovered/Resolved]
  - Pain in jaw [Not Recovered/Not Resolved]
  - Gait inability [Unknown]
  - Gait disturbance [Unknown]
  - Arthralgia [Unknown]
  - Back pain [Unknown]
  - Groin pain [Recovered/Resolved]
  - Back disorder [Recovered/Resolved]
  - Fear [Unknown]
  - Balance disorder [Unknown]
  - Drug dose omission [Not Recovered/Not Resolved]
  - Insomnia [Unknown]
  - Fall [Not Recovered/Not Resolved]
  - Mobility decreased [Not Recovered/Not Resolved]

NARRATIVE: CASE EVENT DATE: 201501
